FAERS Safety Report 14871697 (Version 1)
Quarter: 2018Q2

REPORT INFORMATION
  Report Type: Report from Study
  Country: US (occurrence: US)
  Receive Date: 20180509
  Receipt Date: 20180509
  Transmission Date: 20180711
  Serious: Yes (Hospitalization)
  Sender: FDA-Public Use
  Company Number: US-BAYER-2018-063406

PATIENT
  Age: 63 Year
  Sex: Female

DRUGS (18)
  1. POLYETHYLENE GLYCOL [Concomitant]
     Active Substance: POLYETHYLENE GLYCOLS
  2. DOCUSATE SODIUM. [Concomitant]
     Active Substance: DOCUSATE SODIUM
  3. LISINOPRIL. [Concomitant]
     Active Substance: LISINOPRIL
  4. POTASSIUM [Concomitant]
     Active Substance: POTASSIUM
  5. PANTOPRAZOLE [Concomitant]
     Active Substance: PANTOPRAZOLE
  6. LEVOTHYROXINE. [Concomitant]
     Active Substance: LEVOTHYROXINE
  7. STIVARGA [Suspect]
     Active Substance: REGORAFENIB
     Indication: SOFT TISSUE SARCOMA
     Dosage: 160 MG, QD
     Route: 048
     Dates: start: 2018, end: 2018
  8. AMBIEN [Concomitant]
     Active Substance: ZOLPIDEM TARTRATE
  9. TRAMADOL HYDROCHLORIDE. [Concomitant]
     Active Substance: TRAMADOL HYDROCHLORIDE
  10. HYDROMORPHONE HYDROCHLORIDE. [Concomitant]
     Active Substance: HYDROMORPHONE HYDROCHLORIDE
  11. SERTRALINE HYDROCHLORIDE. [Concomitant]
     Active Substance: SERTRALINE HYDROCHLORIDE
  12. ONDANSETRON HYDROCHLORIDE. [Concomitant]
     Active Substance: ONDANSETRON HYDROCHLORIDE
  13. NORCO [Concomitant]
     Active Substance: ACETAMINOPHEN\HYDROCODONE BITARTRATE
  14. TORSEMIDE. [Concomitant]
     Active Substance: TORSEMIDE
  15. SPIRONOLACTONE. [Concomitant]
     Active Substance: SPIRONOLACTONE
  16. SENEXON [Concomitant]
     Active Substance: SENNOSIDES A AND B
  17. PROCHLORPERAZINE. [Concomitant]
     Active Substance: PROCHLORPERAZINE
  18. STIVARGA [Suspect]
     Active Substance: REGORAFENIB
     Indication: GASTROINTESTINAL STROMAL TUMOUR
     Dosage: 160 MG, QD
     Route: 048
     Dates: start: 20180316, end: 2018

REACTIONS (9)
  - Hospitalisation [None]
  - Palmar-plantar erythrodysaesthesia syndrome [Not Recovered/Not Resolved]
  - Drug ineffective [None]
  - Constipation [None]
  - Nausea [Not Recovered/Not Resolved]
  - Pain in extremity [Not Recovered/Not Resolved]
  - Fatigue [Not Recovered/Not Resolved]
  - Infection [Not Recovered/Not Resolved]
  - Abdominal discomfort [Not Recovered/Not Resolved]

NARRATIVE: CASE EVENT DATE: 20180319
